FAERS Safety Report 4520226-6 (Version None)
Quarter: 2004Q4

REPORT INFORMATION
  Report Type: 
  Country: None (occurrence: None)
  Receive Date: 20041022
  Receipt Date: 20040901
  Transmission Date: 20050328
  Serious: No
  Sender: FDA-Public Use
  Company Number: 2004233191US

PATIENT
  Age: 45 Year
  Sex: Female
  Weight: 54.4 kg

DRUGS (1)
  1. INSPRA [Suspect]
     Indication: BARTTER'S SYNDROME
     Dosage: 25 MG, BID,
     Dates: start: 20040820

REACTIONS (8)
  - ABDOMINAL DISTENSION [None]
  - ABDOMINAL PAIN UPPER [None]
  - BLOOD PRESSURE DECREASED [None]
  - DIZZINESS [None]
  - FATIGUE [None]
  - FEELING HOT [None]
  - HEADACHE [None]
  - MUSCLE CRAMP [None]
